FAERS Safety Report 10230873 (Version 1)
Quarter: 2014Q2

REPORT INFORMATION
  Report Type: Spontaneous
  Country: US (occurrence: None)
  Receive Date: 20140610
  Receipt Date: 20140610
  Transmission Date: 20141212
  Serious: Yes (Other)
  Sender: FDA-Public Use
  Company Number: None

PATIENT
  Age: 48 Year
  Sex: Female
  Weight: 87.54 kg

DRUGS (1)
  1. LANSOPRAZOLE [Suspect]
     Indication: GASTROOESOPHAGEAL REFLUX DISEASE
     Dosage: 1 CAPSULE, ONE DAILY, TAKEN BY MOUTH
     Route: 048
     Dates: start: 20140512, end: 20140605

REACTIONS (5)
  - Diarrhoea [None]
  - Abdominal pain [None]
  - Nausea [None]
  - Dehydration [None]
  - Headache [None]
